FAERS Safety Report 6456396-2 (Version None)
Quarter: 2009Q4

REPORT INFORMATION
  Report Type: 
  Country: None (occurrence: None)
  Receive Date: 20091125
  Receipt Date: 20091113
  Transmission Date: 20100525
  Serious: Yes (Other)
  Sender: FDA-Public Use
  Company Number: PHEH2009US15879

PATIENT
  Sex: Male
  Weight: 18.3 kg

DRUGS (5)
  1. EXJADE [Suspect]
     Indication: SICKLE CELL ANAEMIA
     Dosage: 250 MG, QD
     Route: 048
     Dates: start: 20070108, end: 20070113
  2. EXJADE [Interacting]
     Indication: IRON OVERLOAD
     Dosage: UNK
     Dates: start: 20070309, end: 20070403
  3. HYDROXYUREA [Interacting]
     Dosage: UNK
     Route: 048
     Dates: start: 20050701
  4. FOLIC ACID [Concomitant]
     Dosage: UNK
     Route: 048
  5. PEN-VEE K [Concomitant]
     Dosage: UNK
     Route: 048

REACTIONS (5)
  - ALANINE AMINOTRANSFERASE INCREASED [None]
  - ASPARTATE AMINOTRANSFERASE INCREASED [None]
  - DRUG INTERACTION [None]
  - HAEMOGLOBIN DECREASED [None]
  - LIVER FUNCTION TEST ABNORMAL [None]
